FAERS Safety Report 4603987-7 (Version None)
Quarter: 2005Q1

REPORT INFORMATION
  Report Type: 
  Country: None (occurrence: None)
  Receive Date: 20050310
  Receipt Date: 20050225
  Transmission Date: 20050727
  Serious: Yes (Other)
  Sender: FDA-Public Use
  Company Number: US-GLAXOSMITHKLINE-A0547310A

PATIENT
  Age: 80 Year
  Sex: Female
  Weight: 71.4 kg

DRUGS (6)
  1. GAVISCON [Suspect]
     Indication: GASTROOESOPHAGEAL REFLUX DISEASE
     Route: 048
     Dates: start: 19900101
  2. SYNTHROID [Concomitant]
     Indication: HYPOTHYROIDISM
     Dosage: .09MG PER DAY
     Route: 048
  3. PEPTO BISMOL [Concomitant]
  4. HYZAAR [Concomitant]
     Indication: HYPERTENSION
     Route: 048
  5. ZOCOR [Concomitant]
     Indication: BLOOD CHOLESTEROL
     Dosage: 5MG PER DAY
     Route: 048
  6. PROTONIX [Concomitant]
     Indication: GASTROOESOPHAGEAL REFLUX DISEASE
     Dosage: 40MG PER DAY
     Route: 048

REACTIONS (1)
  - MACULAR DEGENERATION [None]
